FAERS Safety Report 9649264 (Version 1)
Quarter: 2013Q4

REPORT INFORMATION
  Report Type: Spontaneous
  Country: US (occurrence: US)
  Receive Date: 20131028
  Receipt Date: 20131028
  Transmission Date: 20140711
  Serious: Yes (Hospitalization)
  Sender: FDA-Public Use
  Company Number: US-GLAXOSMITHKLINE-A1047196A

PATIENT
  Age: 75 Year
  Sex: Female

DRUGS (1)
  1. ARIXTRA [Suspect]
     Indication: THROMBOSIS
     Route: 065
     Dates: start: 20130703

REACTIONS (2)
  - Abdominal pain upper [Unknown]
  - Back pain [Unknown]
